FAERS Safety Report 9111348 (Version 1)
Quarter: 2013Q1

REPORT INFORMATION
  Report Type: Spontaneous
  Country: US (occurrence: US)
  Receive Date: 20130219
  Receipt Date: 20130219
  Transmission Date: 20140127
  Serious: No
  Sender: FDA-Public Use
  Company Number: US-BRISTOL-MYERS SQUIBB COMPANY-17097635

PATIENT
  Age: 71 Year
  Sex: Female
  Weight: 82.54 kg

DRUGS (2)
  1. ABATACEPT SUBQ INJECTION 125MG/ML [Suspect]
     Indication: RHEUMATOID ARTHRITIS
     Dosage: PRESCRIPTION #:266240,LAST INJ ON 1NOV12
     Route: 058
  2. FORTEO [Concomitant]
     Dosage: INJ

REACTIONS (1)
  - Injection site swelling [Not Recovered/Not Resolved]
